FAERS Safety Report 6113638-0 (Version None)
Quarter: 2009Q1

REPORT INFORMATION
  Report Type: 
  Country: None (occurrence: None)
  Receive Date: 20090312
  Receipt Date: 20090303
  Transmission Date: 20090719
  Serious: Yes (Other)
  Sender: FDA-Public Use
  Company Number: JP-JNJFOC-20090301879

PATIENT
  Age: 22 Year
  Sex: Male

DRUGS (1)
  1. TOPINA [Suspect]
     Indication: EPILEPSY
     Route: 048

REACTIONS (3)
  - DELUSION [None]
  - HALLUCINATION [None]
  - PORIOMANIA [None]
